FAERS Safety Report 5380313-X (Version None)
Quarter: 2007Q3

REPORT INFORMATION
  Report Type: 
  Country: None (occurrence: None)
  Receive Date: 20070706
  Receipt Date: 20070516
  Transmission Date: 20080115
  Serious: No
  Sender: FDA-Public Use
  Company Number: A0651596A

PATIENT
  Age: 50 Year
  Sex: Female

DRUGS (3)
  1. TYKERB [Suspect]
     Indication: BREAST CANCER
     Dosage: 5TAB PER DAY
     Dates: start: 20070410
  2. XELODA [Concomitant]
  3. VITAMIN B6 [Concomitant]

REACTIONS (3)
  - BLISTER [None]
  - DRY SKIN [None]
  - ILL-DEFINED DISORDER [None]
